FAERS Safety Report 10801561 (Version 1)
Quarter: 2015Q1

REPORT INFORMATION
  Report Type: Spontaneous
  Country: US (occurrence: US)
  Receive Date: 20150217
  Receipt Date: 20150217
  Transmission Date: 20150721
  Serious: No
  Sender: FDA-Public Use
  Company Number: US-AMGEN-USASP2015013341

PATIENT
  Age: 38 Year
  Sex: Female

DRUGS (2)
  1. HUMIRA [Suspect]
     Active Substance: ADALIMUMAB
     Indication: RHEUMATOID ARTHRITIS
     Dosage: UNK
     Route: 065
     Dates: start: 20150202
  2. ENBREL [Suspect]
     Active Substance: ETANERCEPT
     Indication: RHEUMATOID ARTHRITIS
     Dosage: 50 MG, QWK
     Route: 065
     Dates: start: 20060419, end: 20150119

REACTIONS (7)
  - Swelling [Recovering/Resolving]
  - Rash erythematous [Recovering/Resolving]
  - Urticaria [Recovering/Resolving]
  - Hypersensitivity [Recovering/Resolving]
  - Diarrhoea [Recovered/Resolved]
  - Abdominal discomfort [Recovered/Resolved]
  - Rash pruritic [Recovering/Resolving]

NARRATIVE: CASE EVENT DATE: 20150204
